FAERS Safety Report 18092306 (Version 1)
Quarter: 2020Q3

REPORT INFORMATION
  Report Type: Spontaneous
  Country: GB (occurrence: GB)
  Receive Date: 20200730
  Receipt Date: 20200730
  Transmission Date: 20201103
  Serious: Yes (Other)
  Sender: FDA-Public Use
  Company Number: ALC2020GB005840

PATIENT

DRUGS (1)
  1. CYCLOPENTOLATE HCL 1% [Suspect]
     Active Substance: CYCLOPENTOLATE HYDROCHLORIDE
     Indication: OPHTHALMOLOGICAL EXAMINATION
     Dosage: ONE IN EACH EYE
     Route: 047
     Dates: start: 20200705, end: 20200705

REACTIONS (5)
  - Cycloplegia [Recovering/Resolving]
  - Eye pain [Not Recovered/Not Resolved]
  - Mydriasis [Recovering/Resolving]
  - Photophobia [Not Recovered/Not Resolved]
  - Headache [Not Recovered/Not Resolved]

NARRATIVE: CASE EVENT DATE: 20200705
